FAERS Safety Report 8210388-1 (Version None)
Quarter: 2012Q1

REPORT INFORMATION
  Report Type: 
  Country: None (occurrence: None)
  Receive Date: 20120314
  Receipt Date: 20120214
  Transmission Date: 20120608
  Serious: No
  Sender: FDA-Public Use
  Company Number: US-ASTRAZENECA-2012SE10379

PATIENT
  Age: 59 Year
  Sex: Male

DRUGS (6)
  1. METFORMIN [Concomitant]
  2. HUMULIN R [Concomitant]
  3. LIPITOR [Concomitant]
  4. TOPROL-XL [Suspect]
     Route: 048
  5. SIMVASTATIN [Concomitant]
  6. ADVAIR DISKUS 100/50 [Concomitant]

REACTIONS (2)
  - DRUG DOSE OMISSION [None]
  - ADVERSE EVENT [None]
